FAERS Safety Report 19439771 (Version 1)
Quarter: 2021Q2

REPORT INFORMATION
  Report Type: Spontaneous
  Country: CN (occurrence: CN)
  Receive Date: 20210620
  Receipt Date: 20210620
  Transmission Date: 20210717
  Serious: Yes (Other)
  Sender: FDA-Public Use
  Company Number: CN-LUPIN PHARMACEUTICALS INC.-2021-09731

PATIENT
  Age: 38 Year

DRUGS (6)
  1. LAMIVUDINE. [Suspect]
     Active Substance: LAMIVUDINE
     Dosage: UNK (RESTARTED)
     Route: 065
  2. TENOFOVIRDISOPROXIL [Suspect]
     Active Substance: TENOFOVIR DISOPROXIL
     Indication: HIV INFECTION
     Dosage: UNK
     Route: 065
  3. EFAVIRENZ. [Suspect]
     Active Substance: EFAVIRENZ
     Indication: HIV INFECTION
     Dosage: UNK
     Route: 065
  4. LAMIVUDINE. [Suspect]
     Active Substance: LAMIVUDINE
     Indication: HIV INFECTION
     Dosage: UNK
     Route: 065
  5. NEVIRAPINE. [Suspect]
     Active Substance: NEVIRAPINE
     Indication: HIV INFECTION
     Dosage: UNK
     Route: 065
  6. TENOFOVIRDISOPROXIL [Suspect]
     Active Substance: TENOFOVIR DISOPROXIL
     Dosage: UNK (RESTARTED)
     Route: 065

REACTIONS (3)
  - Drug resistance [Unknown]
  - Virologic failure [Unknown]
  - Liver disorder [Unknown]
